FAERS Safety Report 23294943 (Version 2)
Quarter: 2024Q4

REPORT INFORMATION
  Report Type: Spontaneous
  Country: FI (occurrence: FI)
  Receive Date: 20231213
  Receipt Date: 20241123
  Transmission Date: 20250114
  Serious: Yes (Death, Other)
  Sender: CELLTRION
  Company Number: FI-CELLTRION INC.-2023FI023451

PATIENT

DRUGS (2)
  1. RITUXIMAB [Suspect]
     Active Substance: RITUXIMAB
     Indication: Chronic lymphocytic leukaemia
     Dosage: FFIVE CYCLES QCY
     Route: 065
     Dates: start: 2014
  2. FLUDARABINE [Suspect]
     Active Substance: FLUDARABINE PHOSPHATE
     Indication: Chronic lymphocytic leukaemia
     Dosage: FIVE CYCLES QCY
     Route: 065
     Dates: start: 200902

REACTIONS (3)
  - Death [Fatal]
  - Progressive multifocal leukoencephalopathy [Unknown]
  - JC virus infection [Unknown]

NARRATIVE: CASE EVENT DATE: 20180501
